FAERS Safety Report 23746079 (Version 1)
Quarter: 2024Q2

REPORT INFORMATION
  Report Type: Spontaneous
  Country: CA (occurrence: None)
  Receive Date: 20240416
  Receipt Date: 20240416
  Transmission Date: 20240716
  Serious: Yes (Death, Hospitalization, Other)
  Sender: FDA-Public Use
  Company Number: 2022A042958

PATIENT
  Age: 64 Year
  Sex: Female

DRUGS (6)
  1. FULVESTRANT [Suspect]
     Active Substance: FULVESTRANT
     Indication: PIK3CA-activated mutation
     Dosage: UNKNOWN UNKNOWN
     Route: 048
     Dates: start: 2021
  2. FULVESTRANT [Suspect]
     Active Substance: FULVESTRANT
     Indication: Breast cancer metastatic
     Dosage: UNKNOWN UNKNOWN
     Route: 048
     Dates: start: 2021
  3. PIQRAY [Suspect]
     Active Substance: ALPELISIB
     Indication: PIK3CA-activated mutation
     Dosage: 300.0MG UNKNOWN
     Route: 048
     Dates: start: 2021
  4. PIQRAY [Suspect]
     Active Substance: ALPELISIB
     Indication: Breast cancer metastatic
     Dosage: 300.0MG UNKNOWN
     Route: 048
     Dates: start: 2021
  5. PIQRAY [Suspect]
     Active Substance: ALPELISIB
     Indication: PIK3CA-activated mutation
     Dosage: 1 EVERY 1 DAYS250.0MG UNKNOWN
     Route: 048
  6. PIQRAY [Suspect]
     Active Substance: ALPELISIB
     Indication: Breast cancer metastatic
     Dosage: 1 EVERY 1 DAYS250.0MG UNKNOWN
     Route: 048

REACTIONS (11)
  - Death [Fatal]
  - Diabetic ketoacidosis [Fatal]
  - Feeding disorder [Fatal]
  - Hyperglycaemia [Fatal]
  - Abdominal distension [Fatal]
  - Peripheral swelling [Fatal]
  - Candida infection [Fatal]
  - Retching [Fatal]
  - Rash [Fatal]
  - Vomiting [Fatal]
  - Diarrhoea [Fatal]

NARRATIVE: CASE EVENT DATE: 20210101
